FAERS Safety Report 5806771-1 (Version None)
Quarter: 2008Q3

REPORT INFORMATION
  Report Type: 
  Country: None (occurrence: None)
  Receive Date: 20080709
  Receipt Date: 20080709
  Transmission Date: 20090109
  Serious: Yes (Disabling)
  Sender: FDA-Public Use
  Company Number: None

PATIENT
  Age: 64 Year
  Sex: Male
  Weight: 73.4827 kg

DRUGS (2)
  1. ISRADIPINE [Suspect]
     Indication: HYPERTENSION
     Dosage: 2.5MG 2X/DAY PO
     Route: 048
     Dates: start: 20061202, end: 20061204
  2. DYNACIRC [Suspect]
     Indication: HYPERTENSION
     Dosage: 5 MG 1X PO,
     Route: 048
     Dates: start: 20080326, end: 20080326

REACTIONS (6)
  - BLOOD PRESSURE FLUCTUATION [None]
  - BLOOD PRESSURE INCREASED [None]
  - BURNING SENSATION [None]
  - NO THERAPEUTIC RESPONSE [None]
  - PAROSMIA [None]
  - POISONING [None]
